FAERS Safety Report 4522358-5 (Version None)
Quarter: 2004Q4

REPORT INFORMATION
  Report Type: 
  Country: None (occurrence: None)
  Receive Date: 20041209
  Receipt Date: 20041004
  Transmission Date: 20050328
  Serious: Yes (Other)
  Sender: FDA-Public Use
  Company Number: JP-GLAXOSMITHKLINE-B0347537A

PATIENT
  Age: 62 Year
  Sex: Female
  Weight: 63 kg

DRUGS (3)
  1. PAXIL [Suspect]
     Indication: DEPRESSION
     Route: 048
     Dates: start: 20031216, end: 20041004
  2. FASTIC [Suspect]
     Dosage: 90MG THREE TIMES PER DAY
     Route: 048
     Dates: start: 20040809, end: 20041004
  3. AMOXAN [Concomitant]
     Dosage: 25MG PER DAY
     Route: 048

REACTIONS (12)
  - ABASIA [None]
  - ABDOMINAL OBESITY [None]
  - BLOOD GLUCOSE DECREASED [None]
  - CREATINE PHOSPHOKINASE DECREASED [None]
  - GLYCOSYLATED HAEMOGLOBIN DECREASED [None]
  - HEADACHE [None]
  - IRRITABLE BOWEL SYNDROME [None]
  - MALAISE [None]
  - MYALGIA [None]
  - NASOPHARYNGITIS [None]
  - PAIN [None]
  - RHABDOMYOLYSIS [None]
